FAERS Safety Report 5705215-8 (Version None)
Quarter: 2008Q2

REPORT INFORMATION
  Report Type: 
  Country: None (occurrence: None)
  Receive Date: 20080410
  Receipt Date: 20080401
  Transmission Date: 20081010
  Serious: Yes (Other)
  Sender: FDA-Public Use
  Company Number: 083-20785-08040371

PATIENT

DRUGS (3)
  1. THALOMID [Suspect]
     Indication: MULTIPLE MYELOMA
     Dosage: 100 MG, DAILY, ORAL
     Route: 048
  2. INTERFERON (INTERFERON) [Suspect]
     Indication: MULTIPLE MYELOMA
     Dosage: 3 MU, X 3 WEEKS,
  3. DEXAMETHASONE TAB [Suspect]
     Indication: MULTIPLE MYELOMA
     Dosage: 20 MG, DAILY X4 DAYS EVERY MONTH, ORAL
     Route: 048

REACTIONS (4)
  - CARDIAC DISORDER [None]
  - HAEMATOTOXICITY [None]
  - HEPATIC FUNCTION ABNORMAL [None]
  - NEUROTOXICITY [None]
